FAERS Safety Report 17604005 (Version 2)
Quarter: 2020Q2

REPORT INFORMATION
  Report Type: Spontaneous
  Country: US (occurrence: US)
  Receive Date: 20200331
  Receipt Date: 20200415
  Transmission Date: 20200713
  Serious: No
  Sender: FDA-Public Use
  Company Number: US-JNJFOC-20200340404

PATIENT
  Sex: Female
  Weight: 54.48 kg

DRUGS (1)
  1. WOMENS ROGAINE [Suspect]
     Active Substance: MINOXIDIL
     Indication: ALOPECIA
     Dosage: PRODUCT STARTED 5 MONTHS AGO?PRODUCT LAST USED ON 31-MAR-2020
     Route: 061
     Dates: start: 201910

REACTIONS (1)
  - Inappropriate schedule of product administration [Unknown]
